FAERS Safety Report 7588857-7 (Version None)
Quarter: 2011Q3

REPORT INFORMATION
  Report Type: 
  Country: None (occurrence: None)
  Receive Date: 20110705
  Receipt Date: 20110701
  Transmission Date: 20111222
  Serious: Yes (Hospitalization)
  Sender: FDA-Public Use
  Company Number: KR-SANOFI-AVENTIS-2010SA047100

PATIENT
  Age: 71 Year
  Sex: Male
  Weight: 62 kg

DRUGS (9)
  1. EPLERENONE [Suspect]
     Route: 065
     Dates: start: 20081202, end: 20081228
  2. EPLERENONE [Suspect]
     Route: 065
     Dates: start: 20081229
  3. DIGOXIN [Concomitant]
     Dates: start: 20060419
  4. CARVEDILOL [Concomitant]
     Dates: start: 20060703
  5. ATACAND [Concomitant]
     Dates: start: 20060419
  6. BASEN [Concomitant]
     Dates: start: 20060419
  7. WARFARIN SODIUM [Concomitant]
     Dates: start: 20061209
  8. LASIX [Suspect]
     Route: 065
     Dates: start: 20060420
  9. AMARYL [Concomitant]
     Dates: start: 20060419

REACTIONS (1)
  - GOUTY ARTHRITIS [None]
